FAERS Safety Report 13263424 (Version 1)
Quarter: 2017Q1

REPORT INFORMATION
  Report Type: Spontaneous
  Country: US (occurrence: US)
  Receive Date: 20170223
  Receipt Date: 20170223
  Transmission Date: 20170428
  Serious: No
  Sender: FDA-Public Use
  Company Number: US-TEVA-742223ACC

PATIENT
  Age: 46 Year
  Sex: Female

DRUGS (10)
  1. LOVASTATIN. [Concomitant]
     Active Substance: LOVASTATIN
  2. XARELTO [Concomitant]
     Active Substance: RIVAROXABAN
  3. COPAXONE [Suspect]
     Active Substance: GLATIRAMER ACETATE
     Indication: MULTIPLE SCLEROSIS
     Route: 058
     Dates: start: 20161228
  4. FERROUS SULFATE. [Concomitant]
     Active Substance: FERROUS SULFATE
  5. HYDROCHLOROT [Concomitant]
     Active Substance: HYDROCHLOROTHIAZIDE
  6. HYDROXY HCL [Concomitant]
  7. BUPROPION. [Concomitant]
     Active Substance: BUPROPION
  8. HYDRO/APAP [Concomitant]
     Active Substance: ACETAMINOPHEN\HYDROCODONE
  9. BENAZEPRIL [Concomitant]
     Active Substance: BENAZEPRIL HYDROCHLORIDE
  10. METFORMIN [Concomitant]
     Active Substance: METFORMIN HYDROCHLORIDE

REACTIONS (3)
  - Injection site pain [Unknown]
  - Injection site pruritus [Unknown]
  - Injection site rash [Unknown]

NARRATIVE: CASE EVENT DATE: 201612
